FAERS Safety Report 8070026-8 (Version None)
Quarter: 2012Q1

REPORT INFORMATION
  Report Type: 
  Country: None (occurrence: None)
  Receive Date: 20120125
  Receipt Date: 20120118
  Transmission Date: 20120608
  Serious: Yes (Other)
  Sender: FDA-Public Use
  Company Number: US-PFIZER INC-2011285388

PATIENT
  Sex: Female

DRUGS (11)
  1. ATIVAN [Concomitant]
     Indication: ANXIETY
     Dosage: UNK
  2. ASPIRIN [Concomitant]
     Indication: CARDIOVASCULAR EVENT PROPHYLAXIS
     Dosage: 325 MG, UNK
  3. NORVASC [Concomitant]
     Indication: HYPERTENSION
     Dosage: 10 MG, UNK
  4. ANTIVERT ^PFIZER^ [Concomitant]
     Indication: VERTIGO
     Dosage: UNK
  5. SYNTHROID [Concomitant]
     Indication: HYPOTHYROIDISM
     Dosage: ^50 MG^, UNK
  6. FOSAMAX [Concomitant]
     Indication: OSTEOPOROSIS
     Dosage: 70 MG, UNK
  7. METOPROLOL [Concomitant]
     Indication: HYPERTENSION
     Dosage: 25 MG, UNK
     Route: 048
  8. CALCIUM WITH VITAMIN D [Concomitant]
     Indication: OSTEOPOROSIS
     Dosage: UNK
  9. EFFEXOR XR [Suspect]
     Dosage: 37.5 MG
     Route: 048
  10. EFFEXOR [Suspect]
     Dosage: 32.5 TO 75 MG QD
     Route: 048
  11. METOPROLOL [Concomitant]
     Dosage: 12.5 MG, (QPM)
     Route: 048

REACTIONS (3)
  - CHOKING [None]
  - DYSPHAGIA [None]
  - AMYOTROPHIC LATERAL SCLEROSIS [None]
